FAERS Safety Report 20068831 (Version 4)
Quarter: 2022Q1

REPORT INFORMATION
  Report Type: Spontaneous
  Country: US (occurrence: US)
  Receive Date: 20211115
  Receipt Date: 20220106
  Transmission Date: 20220424
  Serious: Yes (Other)
  Sender: FDA-Public Use
  Company Number: US-PFIZER INC-202101498189

PATIENT
  Sex: Male

DRUGS (2)
  1. LEVOXYL [Suspect]
     Active Substance: LEVOTHYROXINE SODIUM
     Indication: Hypothyroidism
     Dosage: 150 UG, 1X/DAY
     Route: 048
  2. LEVOXYL [Suspect]
     Active Substance: LEVOTHYROXINE SODIUM
     Indication: Autoimmune thyroiditis

REACTIONS (12)
  - Hypothyroidism [Unknown]
  - Disease recurrence [Unknown]
  - Heart rate decreased [Unknown]
  - Body temperature decreased [Unknown]
  - Drug ineffective [Unknown]
  - Feeling cold [Unknown]
  - Fatigue [Unknown]
  - Malaise [Unknown]
  - Feeling abnormal [Unknown]
  - Recalled product administered [Unknown]
  - Product temperature excursion issue [Unknown]
  - Poor quality product administered [Unknown]
